FAERS Safety Report 13985106 (Version 1)
Quarter: 2017Q3

REPORT INFORMATION
  Report Type: Report from Study
  Country: None (occurrence: GB)
  Receive Date: 20170919
  Receipt Date: 20170919
  Transmission Date: 20171128
  Serious: Yes (Other)
  Sender: FDA-Public Use
  Company Number: GB-ABBVIE-17K-167-2057678-00

PATIENT
  Age: 79 Year
  Sex: Female

DRUGS (1)
  1. HUMIRA [Suspect]
     Active Substance: ADALIMUMAB
     Indication: RHEUMATOID ARTHRITIS
     Route: 058
     Dates: start: 20041215, end: 20060415

REACTIONS (6)
  - Metastases to gastrointestinal tract [Not Recovered/Not Resolved]
  - Dysplasia [Unknown]
  - Colon cancer metastatic [Unknown]
  - Metastases to liver [Unknown]
  - Metastases to pancreas [Unknown]
  - Metastases to spleen [Unknown]

NARRATIVE: CASE EVENT DATE: 20141126
